FAERS Safety Report 5660750-6 (Version None)
Quarter: 2008Q1

REPORT INFORMATION
  Report Type: 
  Country: None (occurrence: None)
  Receive Date: 20080311
  Receipt Date: 20080227
  Transmission Date: 20080703
  Serious: Yes (Death, Other)
  Sender: FDA-Public Use
  Company Number: GB-ELI_LILLY_AND_COMPANY-GB200802006825

PATIENT

DRUGS (2)
  1. GEMZAR [Suspect]
     Dosage: 1250 MG/M2, UNKNOWN
     Dates: start: 20071125
  2. NAPROXEN [Interacting]
     Indication: GOUT

REACTIONS (4)
  - ALOPECIA [None]
  - DEATH [None]
  - NEUTROPENIA [None]
  - RENAL FAILURE [None]
